FAERS Safety Report 15363429 (Version 1)
Quarter: 2018Q3

REPORT INFORMATION
  Report Type: Spontaneous
  Country: US (occurrence: US)
  Receive Date: 20180907
  Receipt Date: 20180907
  Transmission Date: 20181010
  Serious: No
  Sender: FDA-Public Use
  Company Number: US-ACTELION-A-US2018-178369

PATIENT
  Age: 57 Year
  Sex: Male

DRUGS (2)
  1. TRACLEER [Suspect]
     Active Substance: BOSENTAN
     Indication: PULMONARY ARTERIAL HYPERTENSION
     Dosage: 125 MG, BID
     Route: 048
     Dates: start: 2018
  2. TYVASO [Concomitant]
     Active Substance: TREPROSTINIL

REACTIONS (8)
  - Dyspnoea exertional [Unknown]
  - Abdominal distension [Unknown]
  - Fatigue [Unknown]
  - Fluid retention [Unknown]
  - Oedema peripheral [Unknown]
  - Weight increased [Unknown]
  - Concomitant disease aggravated [Unknown]
  - Feeling abnormal [Unknown]

NARRATIVE: CASE EVENT DATE: 201808
